FAERS Safety Report 6718183-7 (Version None)
Quarter: 2010Q2

REPORT INFORMATION
  Report Type: 
  Country: None (occurrence: None)
  Receive Date: 20100510
  Receipt Date: 20100428
  Transmission Date: 20101027
  Serious: Yes (Other)
  Sender: FDA-Public Use
  Company Number: US-PFIZER INC-2010054346

PATIENT
  Sex: Male

DRUGS (2)
  1. CHANTIX [Suspect]
     Dosage: UNK
  2. OXYCODONE [Interacting]
     Dosage: UNK

REACTIONS (3)
  - INHIBITORY DRUG INTERACTION [None]
  - KNEE OPERATION [None]
  - PAIN [None]
